FAERS Safety Report 7454928-9 (Version None)
Quarter: 2011Q2

REPORT INFORMATION
  Report Type: 
  Country: None (occurrence: None)
  Receive Date: 20110425
  Receipt Date: 20110411
  Transmission Date: 20111010
  Serious: Yes (Death, Life-Threatening)
  Sender: FDA-Public Use
  Company Number: 2009AL004466

PATIENT
  Age: 10 Day
  Sex: Male

DRUGS (1)
  1. FLUOXETINE [Suspect]
     Indication: DRUG EXPOSURE DURING PREGNANCY
     Dosage: 20 MG; QD; TRMA
     Route: 064

REACTIONS (11)
  - JAUNDICE [None]
  - CARDIOVASCULAR DISORDER [None]
  - CEREBRAL DISORDER [None]
  - PREMATURE BABY [None]
  - PNEUMONIA [None]
  - DEATH NEONATAL [None]
  - PERICARDIAL EFFUSION [None]
  - TREMOR NEONATAL [None]
  - MATERNAL DRUGS AFFECTING FOETUS [None]
  - NEONATAL ANOXIA [None]
  - DRUG EXPOSURE VIA BREAST MILK [None]
